FAERS Safety Report 5255742-5 (Version None)
Quarter: 2007Q1

REPORT INFORMATION
  Report Type: 
  Country: None (occurrence: None)
  Receive Date: 20070301
  Receipt Date: 20070220
  Transmission Date: 20070707
  Serious: Yes (Other)
  Sender: FDA-Public Use
  Company Number: CHNY2007JP00993

PATIENT

DRUGS (1)
  1. NICOTINE [Suspect]
     Dosage: UNK, UNK, TRANSDERMAL
     Route: 062

REACTIONS (2)
  - APPLICATION SITE RASH [None]
  - DERMATITIS BULLOUS [None]
